FAERS Safety Report 23057289 (Version 2)
Quarter: 2023Q4

REPORT INFORMATION
  Report Type: Spontaneous
  Country: JP (occurrence: JP)
  Receive Date: 20231012
  Receipt Date: 20231120
  Transmission Date: 20240109
  Serious: Yes (Hospitalization, Other)
  Sender: FDA-Public Use
  Company Number: JP-AMGEN-JPNSP2023128350

PATIENT
  Age: 68 Year
  Sex: Female
  Weight: 39 kg

DRUGS (9)
  1. EVENITY [Suspect]
     Active Substance: ROMOSOZUMAB-AQQG
     Indication: Osteoporosis
     Dosage: 210 MILLIGRAM, QMO
     Route: 058
     Dates: start: 20190930, end: 20191125
  2. ASPIRIN [Concomitant]
     Active Substance: ASPIRIN
     Indication: Chronic kidney disease
     Dosage: 100 MILLIGRAM, QD(AFTER BREAKFAST)
  3. CLOPIDOGREL BISULFATE [Concomitant]
     Active Substance: CLOPIDOGREL BISULFATE
     Indication: Chronic kidney disease
     Dosage: 75 MILLIGRAM, QD(AFTER BREAKFAST)
  4. LIPITOR [Concomitant]
     Active Substance: ATORVASTATIN CALCIUM
     Indication: Chronic kidney disease
     Dosage: 10 MILLIGRAM, QD (AFTER BREAKFAST)
  5. NEXIUM [Concomitant]
     Active Substance: ESOMEPRAZOLE MAGNESIUM
     Indication: Chronic kidney disease
     Dosage: 10 MILLIGRAM, QD(AFTER DINNER)
  6. ETHYL LOFLAZEPATE [Concomitant]
     Active Substance: ETHYL LOFLAZEPATE
     Indication: Chronic kidney disease
     Dosage: 1 GRAM, QD(AFTER DINNER)
  7. REBAMIPIDE [Concomitant]
     Active Substance: REBAMIPIDE
     Indication: Chronic kidney disease
     Dosage: 100 MILLIGRAM, TID(AFTER EACH MEAL)
  8. CALCIUM CARBONATE [Concomitant]
     Active Substance: CALCIUM CARBONATE
     Indication: Chronic kidney disease
     Dosage: 0.5 MILLIGRAM, TID (AFTER EACH MEAL)
  9. ALFAROL [Concomitant]
     Active Substance: ALFACALCIDOL
     Dosage: 0.25 MILLIGRAM, QD(AFTER BREAKFAST)

REACTIONS (1)
  - Acute myocardial infarction [Recovered/Resolved]

NARRATIVE: CASE EVENT DATE: 20191006
